FAERS Safety Report 18153754 (Version 1)
Quarter: 2020Q3

REPORT INFORMATION
  Report Type: Spontaneous
  Country: PT (occurrence: PT)
  Receive Date: 20200816
  Receipt Date: 20200816
  Transmission Date: 20201103
  Serious: Yes (Other)
  Sender: FDA-Public Use
  Company Number: NVSC2020PT223888

PATIENT
  Age: 69 Year
  Sex: Female

DRUGS (3)
  1. RIVASTIGMINE. [Suspect]
     Active Substance: RIVASTIGMINE
     Indication: PRODUCT USED FOR UNKNOWN INDICATION
     Dosage: UNK (UNKNOWN)
     Route: 065
  2. SINEMET [Suspect]
     Active Substance: CARBIDOPA\LEVODOPA
     Indication: ON AND OFF PHENOMENON
     Dosage: UNK (LEVODOPA DOSE: 200 (NO UNITS PROVIDED), UNKNOWN)
     Route: 065
  3. ONGENTYS [Suspect]
     Active Substance: OPICAPONE
     Indication: ON AND OFF PHENOMENON
     Dosage: UNK (UNKNOWN)
     Route: 065

REACTIONS (18)
  - Dysphagia [Unknown]
  - Dementia [Unknown]
  - Dysphonia [Unknown]
  - Pain [Unknown]
  - Bradykinesia [Unknown]
  - Sleep disorder [Unknown]
  - Balance disorder [Unknown]
  - Depression [Unknown]
  - Dystonia [Unknown]
  - Tremor [Unknown]
  - Constipation [Unknown]
  - Saliva altered [Unknown]
  - Gait disturbance [Unknown]
  - Anxiety [Unknown]
  - Muscle rigidity [Unknown]
  - Fatigue [Unknown]
  - Therapeutic response shortened [Unknown]
  - Confusional state [Unknown]
